FAERS Safety Report 8895789 (Version 2)
Quarter: 2013Q1

REPORT INFORMATION
  Report Type: Spontaneous
  Country: GB (occurrence: GB)
  Receive Date: 20121108
  Receipt Date: 20130321
  Transmission Date: 20140127
  Serious: Yes (Death, Other)
  Sender: FDA-Public Use
  Company Number: GB-ROCHE-1153088

PATIENT
  Age: 63 Year
  Sex: Female
  Weight: 77.8 kg

DRUGS (6)
  1. ROACTEMRA [Suspect]
     Indication: RHEUMATOID ARTHRITIS
     Route: 042
     Dates: start: 2010, end: 20120917
  2. ATENOLOL [Concomitant]
     Route: 050
  3. FERROUS SULPHATE [Concomitant]
     Route: 050
  4. FOLIC ACID [Concomitant]
     Route: 065
  5. METHOTREXATE [Concomitant]
     Route: 065
  6. OMEPRAZOLE [Concomitant]
     Route: 065

REACTIONS (8)
  - Cardiac arrest [Not Recovered/Not Resolved]
  - Coagulopathy [Unknown]
  - Diarrhoea [Not Recovered/Not Resolved]
  - Disseminated intravascular coagulation [Fatal]
  - Blood lactic acid increased [Unknown]
  - Sepsis [Fatal]
  - Streptococcus test positive [Unknown]
  - Vomiting [Not Recovered/Not Resolved]
